FAERS Safety Report 9443989 (Version 2)
Quarter: 2013Q3

REPORT INFORMATION
  Report Type: Spontaneous
  Country: US (occurrence: US)
  Receive Date: 20130807
  Receipt Date: 20130819
  Transmission Date: 20140515
  Serious: No
  Sender: FDA-Public Use
  Company Number: US-BIOGENIDEC-2013BI072230

PATIENT
  Age: 45 Year
  Sex: Female

DRUGS (1)
  1. TYSABRI [Suspect]
     Indication: MULTIPLE SCLEROSIS
     Route: 042
     Dates: start: 20130801

REACTIONS (7)
  - Feeling hot [Recovered/Resolved]
  - Peripheral coldness [Unknown]
  - Body temperature increased [Unknown]
  - Paraesthesia [Recovered/Resolved]
  - Paraesthesia oral [Not Recovered/Not Resolved]
  - Head discomfort [Recovered/Resolved]
  - Infusion related reaction [Recovered/Resolved]
